FAERS Safety Report 24636937 (Version 3)
Quarter: 2025Q1

REPORT INFORMATION
  Report Type: Spontaneous
  Country: US (occurrence: US)
  Receive Date: 20241119
  Receipt Date: 20250117
  Transmission Date: 20250409
  Serious: No
  Sender: PFIZER
  Company Number: US-PFIZER INC-202400301721

PATIENT
  Age: 12 Year
  Sex: Female

DRUGS (2)
  1. GENOTROPIN [Suspect]
     Active Substance: SOMATROPIN
     Dosage: 1.2 MG, ALTERNATE DAY, ALTERNATING WITH 1.4 MG
  2. GENOTROPIN [Suspect]
     Active Substance: SOMATROPIN
     Dosage: 1.4 MG, ALTERNATE DAY, ALTERNATING WITH 1.2 MG

REACTIONS (7)
  - Drug dose omission by device [Unknown]
  - Device delivery system issue [Unknown]
  - Liquid product physical issue [Unknown]
  - Device use issue [Unknown]
  - Device power source issue [Unknown]
  - Device information output issue [Unknown]
  - Expired device used [Unknown]

NARRATIVE: CASE EVENT DATE: 20241109
